FAERS Safety Report 4954607-3 (Version None)
Quarter: 2006Q1

REPORT INFORMATION
  Report Type: 
  Country: None (occurrence: None)
  Receive Date: 20060327
  Receipt Date: 20060224
  Transmission Date: 20060701
  Serious: Yes (Other)
  Sender: FDA-Public Use
  Company Number: JP-ROCHE-438559

PATIENT
  Age: 5 Year
  Sex: Male
  Weight: 19 kg

DRUGS (1)
  1. TAMIFLU [Suspect]
     Route: 048
     Dates: start: 20060123, end: 20060123

REACTIONS (1)
  - DIARRHOEA [None]
